FAERS Safety Report 25172417 (Version 1)
Quarter: 2025Q2

REPORT INFORMATION
  Report Type: Spontaneous
  Country: US (occurrence: None)
  Receive Date: 20250407
  Receipt Date: 20250407
  Transmission Date: 20250716
  Serious: Yes (Life-Threatening, Hospitalization)
  Sender: FDA-CTU
  Company Number: None

PATIENT
  Age: 78 Year
  Sex: Female
  Weight: 83.9 kg

DRUGS (9)
  1. DANAZOL [Suspect]
     Active Substance: DANAZOL
     Indication: Primary myelofibrosis
     Dosage: FREQUENCY : TWICE A DAY;?
     Route: 048
     Dates: start: 20230301, end: 20240901
  2. DANAZOL [Suspect]
     Active Substance: DANAZOL
     Indication: Myelofibrosis
  3. B12 [Concomitant]
     Dates: start: 20240401
  4. Alpha-linolenic acid (ALA) [Concomitant]
     Dates: start: 20250101
  5. MINERALS\VITAMINS [Concomitant]
     Active Substance: MINERALS\VITAMINS
     Dates: start: 20180101
  6. ATORVASTATIN [Concomitant]
     Active Substance: ATORVASTATIN
  7. AMLODIPINE [Concomitant]
     Active Substance: AMLODIPINE BESYLATE
  8. ALLOPURINOL [Concomitant]
     Active Substance: ALLOPURINOL
     Dates: start: 20170101
  9. ELIQUIS [Concomitant]
     Active Substance: APIXABAN
     Dates: start: 20240801

REACTIONS (1)
  - Transient ischaemic attack [None]

NARRATIVE: CASE EVENT DATE: 20240721
